FAERS Safety Report 6336305-7 (Version None)
Quarter: 2009Q3

REPORT INFORMATION
  Report Type: 
  Country: None (occurrence: None)
  Receive Date: 20090901
  Receipt Date: 20090727
  Transmission Date: 20100115
  Serious: No
  Sender: FDA-Public Use
  Company Number: FR-CELGENEUS-056-20484-09071437

PATIENT
  Sex: Female
  Weight: 72 kg

DRUGS (1)
  1. INNOHEP [Suspect]
     Indication: CATHETER THROMBOSIS
     Route: 058
     Dates: start: 20090322

REACTIONS (3)
  - INJECTION SITE HAEMATOMA [None]
  - INJECTION SITE NODULE [None]
  - INJECTION SITE PAIN [None]
